FAERS Safety Report 5046093-2 (Version None)
Quarter: 2006Q3

REPORT INFORMATION
  Report Type: 
  Country: None (occurrence: None)
  Receive Date: 20060710
  Receipt Date: 20060629
  Transmission Date: 20061208
  Serious: Yes (Death)
  Sender: FDA-Public Use
  Company Number: US-JNJFOC-20060606625

PATIENT
  Sex: Male

DRUGS (13)
  1. REMICADE [Suspect]
     Route: 042
  2. REMICADE [Suspect]
     Indication: RHEUMATOID ARTHRITIS
     Route: 042
  3. METHOTREXATE [Concomitant]
  4. PREDNISONE TAB [Concomitant]
  5. ZOLOFT [Concomitant]
  6. ZYPREXA [Concomitant]
  7. NEURONTIN [Concomitant]
  8. BEXTRA [Concomitant]
  9. FOLIC ACID [Concomitant]
  10. MEVACOR [Concomitant]
  11. CARDURA [Concomitant]
  12. CALCIUM GLUCONATE [Concomitant]
  13. FOSAMAX [Concomitant]

REACTIONS (1)
  - RENAL CELL CARCINOMA STAGE UNSPECIFIED [None]
